FAERS Safety Report 9928044 (Version 2)
Quarter: 2014Q2

REPORT INFORMATION
  Report Type: Spontaneous
  Country: CH (occurrence: None)
  Receive Date: 20140224
  Receipt Date: 20140414
  Transmission Date: 20141212
  Serious: Yes (Hospitalization)
  Sender: FDA-Public Use
  Company Number: 20140067

PATIENT
  Age: 47 Year
  Sex: Female
  Weight: 64 kg

DRUGS (13)
  1. FERINJECT [Suspect]
     Indication: IRON DEFICIENCY ANAEMIA
     Route: 042
     Dates: start: 20111107, end: 20111107
  2. APROVEL (IRBESARTAN) [Concomitant]
  3. CELLCEPT (MYCOPHENOLATE MOFETIL) [Concomitant]
  4. LANTUS (INSULINE GLARGINE) [Concomitant]
  5. LEVOTHYROXINE (LEVOTHYROXINE) [Concomitant]
  6. MICROGYNON 50 (ETHINYLOESTRADIOL LEVONORGESTREL) [Concomitant]
  7. NOVORAPID (INSULIN ASPART) [Concomitant]
  8. PANTOPRAZOL (PANTOPRAZOLE SODIUM SESQUIHYDRATE) [Concomitant]
  9. PARACETAMOL (PARACETAMOL) [Concomitant]
  10. PROGRAF (TACROLIMUS) [Concomitant]
  11. RED BLOOD CELL [Concomitant]
  12. AMLODIPINE [Concomitant]
  13. FLUVASTATIN [Concomitant]

REACTIONS (12)
  - Hypophosphataemia [None]
  - Depression [None]
  - Nausea [None]
  - Asthenia [None]
  - Vomiting [None]
  - Diarrhoea [None]
  - Fatigue [None]
  - Hypothyroidism [None]
  - Condition aggravated [None]
  - Vitamin D deficiency [None]
  - Blood magnesium decreased [None]
  - Anaemia [None]
